FAERS Safety Report 19799358 (Version 1)
Quarter: 2021Q3

REPORT INFORMATION
  Report Type: Spontaneous
  Country: US (occurrence: US)
  Receive Date: 20210907
  Receipt Date: 20210907
  Transmission Date: 20211014
  Serious: Yes (Other)
  Sender: FDA-Public Use
  Company Number: NVSC2021US195706

PATIENT
  Age: 68 Year
  Sex: Female
  Weight: 58.4 kg

DRUGS (1)
  1. KYMRIAH [Suspect]
     Active Substance: TISAGENLECLEUCEL
     Indication: DIFFUSE LARGE B-CELL LYMPHOMA
     Dosage: UNK
     Route: 041
     Dates: start: 20210527

REACTIONS (9)
  - Fatigue [Unknown]
  - Decreased appetite [Unknown]
  - Cytokine release syndrome [Unknown]
  - Pyrexia [Unknown]
  - Tachycardia [Unknown]
  - Nausea [Unknown]
  - Immune effector cell-associated neurotoxicity syndrome [Unknown]
  - Pleural effusion [Unknown]
  - Malaise [Unknown]

NARRATIVE: CASE EVENT DATE: 20210528
